FAERS Safety Report 5409395-3 (Version None)
Quarter: 2007Q3

REPORT INFORMATION
  Report Type: 
  Country: None (occurrence: None)
  Receive Date: 20070808
  Receipt Date: 20070808
  Transmission Date: 20080115
  Serious: Yes (Life-Threatening, Hospitalization)
  Sender: FDA-Public Use
  Company Number: None

PATIENT
  Age: 57 Year
  Sex: Male
  Weight: 174 kg

DRUGS (1)
  1. CEFUROXIME [Suspect]
     Indication: LYME DISEASE
     Dosage: 500MG BID PO
     Route: 048
     Dates: start: 20070523, end: 20070607

REACTIONS (5)
  - CHEST DISCOMFORT [None]
  - DRUG HYPERSENSITIVITY [None]
  - FATIGUE [None]
  - HAEMOLYTIC ANAEMIA [None]
  - PALLOR [None]
